FAERS Safety Report 10007297 (Version 3)
Quarter: 2014Q2

REPORT INFORMATION
  Report Type: Report from Study
  Country: US (occurrence: US)
  Receive Date: 20140313
  Receipt Date: 20140520
  Transmission Date: 20141212
  Serious: Yes (Hospitalization, Other)
  Sender: FDA-Public Use
  Company Number: US-SA-2014SA024064

PATIENT
  Age: 26 Year
  Sex: Female

DRUGS (1)
  1. AUBAGIO [Suspect]
     Indication: MULTIPLE SCLEROSIS
     Route: 048
     Dates: start: 20140131, end: 20140507

REACTIONS (11)
  - Paraesthesia [Recovering/Resolving]
  - Cystitis [Unknown]
  - Kidney infection [Unknown]
  - Flushing [Unknown]
  - Acne [Unknown]
  - Contusion [Unknown]
  - Erythema [Unknown]
  - Swollen tongue [Not Recovered/Not Resolved]
  - Urinary tract infection [Unknown]
  - Influenza [Unknown]
  - Alopecia [Unknown]
